FAERS Safety Report 8335834-4 (Version None)
Quarter: 2012Q2

REPORT INFORMATION
  Report Type: 
  Country: None (occurrence: None)
  Receive Date: 20120502
  Receipt Date: 20120502
  Transmission Date: 20120825
  Serious: Yes (Other)
  Sender: FDA-Public Use
  Company Number: None

PATIENT
  Sex: Female

DRUGS (1)
  1. GAMUNEX [Suspect]
     Dosage: INJECTABLE Q 2 WEEKS
     Route: 042
     Dates: start: 20120309

REACTIONS (2)
  - RED BLOOD CELL BURR CELLS PRESENT [None]
  - POIKILOCYTOSIS [None]
